FAERS Safety Report 5024301-1 (Version None)
Quarter: 2006Q2

REPORT INFORMATION
  Report Type: 
  Country: None (occurrence: None)
  Receive Date: 20060607
  Receipt Date: 20060524
  Transmission Date: 20061013
  Serious: Yes (Death)
  Sender: FDA-Public Use
  Company Number: 2006054772

PATIENT
  Age: 70 Year
  Sex: Female
  Weight: 47 kg

DRUGS (2)
  1. AROMASIN [Suspect]
     Indication: BREAST CANCER
     Dosage: 25 MG (25 MG, 1 IN 1 D); ORAL
     Route: 048
     Dates: start: 20060326, end: 20060331
  2. TAMOXIFEN [Concomitant]

REACTIONS (3)
  - CARDIOVASCULAR DISORDER [None]
  - MYALGIA [None]
  - NAUSEA [None]
